FAERS Safety Report 17041712 (Version 1)
Quarter: 2019Q4

REPORT INFORMATION
  Report Type: Spontaneous
  Country: US (occurrence: US)
  Receive Date: 20191016
  Receipt Date: 20191016
  Transmission Date: 20200122
  Serious: Yes (Hospitalization)
  Sender: FDA-Public Use
  Company Number: None

PATIENT
  Age: 73 Year
  Sex: Male

DRUGS (17)
  1. FUROSEMIDE. [Concomitant]
     Active Substance: FUROSEMIDE
  2. AZYTHROMYCIN [Concomitant]
     Active Substance: AZITHROMYCIN ANHYDROUS
  3. MULTI CAP [Concomitant]
  4. ACYCLOVIR. [Concomitant]
     Active Substance: ACYCLOVIR
  5. MYCOPHENOLATE 500MG [Suspect]
     Active Substance: MYCOPHENOLIC ACID
     Indication: LUNG TRANSPLANT
     Route: 048
     Dates: start: 20150606
  6. ASPIRIN. [Concomitant]
     Active Substance: ASPIRIN
  7. ONDANSETRON [Concomitant]
     Active Substance: ONDANSETRON
  8. ATORVASTATIN [Concomitant]
     Active Substance: ATORVASTATIN
  9. CALCIUM [Concomitant]
     Active Substance: CALCIUM
  10. METOPROLOL. [Concomitant]
     Active Substance: METOPROLOL
  11. TACROLIMUS 0.5 [Suspect]
     Active Substance: TACROLIMUS
     Indication: LUNG TRANSPLANT
     Route: 048
     Dates: start: 20150606
  12. PANTOPRAZOLE [Concomitant]
     Active Substance: PANTOPRAZOLE
  13. AMIODARONE [Concomitant]
     Active Substance: AMIODARONE
  14. CLOTRIMAZOLE. [Concomitant]
     Active Substance: CLOTRIMAZOLE
  15. FERROUS SULF [Concomitant]
     Active Substance: FERROUS SULFATE
  16. MAG OXIDE [Concomitant]
     Active Substance: MAGNESIUM OXIDE
  17. VITAMIN C [Concomitant]
     Active Substance: ASCORBIC ACID

REACTIONS (2)
  - Road traffic accident [None]
  - Anxiety [None]

NARRATIVE: CASE EVENT DATE: 20191013
